FAERS Safety Report 5170534-3 (Version None)
Quarter: 2006Q4

REPORT INFORMATION
  Report Type: 
  Country: None (occurrence: None)
  Receive Date: 20061204
  Receipt Date: 20061128
  Transmission Date: 20070319
  Serious: Yes (Life-Threatening, Hospitalization, Other)
  Sender: FDA-Public Use
  Company Number: 2006AP001050

PATIENT
  Age: 15 Year
  Sex: Female

DRUGS (2)
  1. METFORMIN HCL [Suspect]
     Dosage: 14.5 G;1X
     Route: 048
  2. GLIPIZIDE [Suspect]
     Dosage: 375 MG;1X
     Route: 048

REACTIONS (7)
  - ANXIETY [None]
  - FAMILY STRESS [None]
  - GLASGOW COMA SCALE ABNORMAL [None]
  - HYPERHIDROSIS [None]
  - HYPOGLYCAEMIA [None]
  - MULTIPLE DRUG OVERDOSE INTENTIONAL [None]
  - VOMITING [None]
